FAERS Safety Report 5247628-7 (Version None)
Quarter: 2007Q1

REPORT INFORMATION
  Report Type: 
  Country: None (occurrence: None)
  Receive Date: 20070220
  Receipt Date: 20070209
  Transmission Date: 20070707
  Serious: Yes (Hospitalization)
  Sender: FDA-Public Use
  Company Number: 231096K07USA

PATIENT
  Age: 42 Year
  Sex: Female

DRUGS (5)
  1. REBIF [Suspect]
     Indication: MULTIPLE SCLEROSIS
     Dosage: 44 MCG, 3 IN 1 WEEKS, SUBCUTANEOUS
     Route: 058
     Dates: start: 20021210, end: 20070131
  2. DETROL LA [Concomitant]
  3. SERTRALINE [Concomitant]
  4. BACLOFEN [Concomitant]
  5. NEXIUM [Concomitant]

REACTIONS (6)
  - ASTHENIA [None]
  - CHEST PAIN [None]
  - HYPERSENSITIVITY [None]
  - MIGRAINE [None]
  - PARAESTHESIA [None]
  - PYREXIA [None]
